FAERS Safety Report 5358524-9 (Version None)
Quarter: 2007Q2

REPORT INFORMATION
  Report Type: 
  Country: None (occurrence: None)
  Receive Date: 20070614
  Receipt Date: 20070614
  Transmission Date: 20071010
  Serious: Yes (Other)
  Sender: FDA-Public Use
  Company Number: None

PATIENT
  Age: 76 Year
  Sex: Male
  Weight: 88.4514 kg

DRUGS (4)
  1. VERAMYST [Suspect]
     Indication: HYPERSENSITIVITY
     Dosage: I SPRAY EACH NOSTRIL 1 TIME
     Dates: start: 20070606, end: 20070607
  2. VERAMYST [Suspect]
     Indication: SINUS DISORDER
     Dosage: I SPRAY EACH NOSTRIL 1 TIME
     Dates: start: 20070606, end: 20070607
  3. VERAMYST [Suspect]
     Indication: HYPERSENSITIVITY
     Dosage: I SPRAY EACH NOSTRIL 1 TIME
     Dates: start: 20070607, end: 20070607
  4. VERAMYST [Suspect]
     Indication: SINUS DISORDER
     Dosage: I SPRAY EACH NOSTRIL 1 TIME
     Dates: start: 20070607, end: 20070607

REACTIONS (7)
  - ASTHENIA [None]
  - EYELID OEDEMA [None]
  - FATIGUE [None]
  - HEADACHE [None]
  - NASAL DISCOMFORT [None]
  - RASH ERYTHEMATOUS [None]
  - REACTION TO DRUG EXCIPIENTS [None]
